FAERS Safety Report 6504791-5 (Version None)
Quarter: 2009Q4

REPORT INFORMATION
  Report Type: 
  Country: None (occurrence: None)
  Receive Date: 20091216
  Receipt Date: 20091202
  Transmission Date: 20100525
  Serious: Yes (Other)
  Sender: FDA-Public Use
  Company Number: 1-20888266

PATIENT
  Sex: Female

DRUGS (1)
  1. CLOTRIMAZOLE [Suspect]
     Indication: VAGINAL INFECTION
     Dosage: ONCE, VAGINAL
     Route: 067
     Dates: start: 20091129, end: 20091129

REACTIONS (3)
  - PRODUCT PACKAGING ISSUE [None]
  - VULVOVAGINAL DISCOMFORT [None]
  - VULVOVAGINAL PAIN [None]
